FAERS Safety Report 5370599-X (Version None)
Quarter: 2007Q2

REPORT INFORMATION
  Report Type: 
  Country: None (occurrence: None)
  Receive Date: 20070626
  Receipt Date: 20070614
  Transmission Date: 20071010
  Serious: Yes (Other)
  Sender: FDA-Public Use
  Company Number: PHRM2007FR01725

PATIENT
  Sex: Female

DRUGS (2)
  1. EXELON [Suspect]
     Indication: DEMENTIA
     Dosage: UNK, UNK
     Route: 048
     Dates: start: 20060601
  2. MODOPAR [Concomitant]
     Route: 048
     Dates: start: 20061201

REACTIONS (3)
  - COLITIS COLLAGENOUS [None]
  - COLONOSCOPY ABNORMAL [None]
  - DIARRHOEA [None]
